FAERS Safety Report 10278576 (Version 2)
Quarter: 2014Q3

REPORT INFORMATION
  Report Type: Report from Study
  Country: ES (occurrence: ES)
  Receive Date: 20140704
  Receipt Date: 20140704
  Transmission Date: 20150326
  Serious: Yes (Other)
  Sender: FDA-Public Use
  Company Number: ES-ROCHE-1285006

PATIENT
  Age: 52 Year
  Sex: Female
  Weight: 79.2 kg

DRUGS (13)
  1. LORAZEPAM. [Concomitant]
     Active Substance: LORAZEPAM
     Route: 048
  2. MONTELUKAST SODIUM. [Concomitant]
     Active Substance: MONTELUKAST SODIUM
     Indication: ASTHMA
     Route: 048
  3. CEFDITOREN PIVOXIL. [Concomitant]
     Active Substance: CEFDITOREN PIVOXIL
  4. IBUPROFENO [Concomitant]
     Active Substance: IBUPROFEN
     Indication: RHINORRHOEA
     Route: 048
     Dates: start: 20130918, end: 20130918
  5. BLINDED COBIMETINIB [Suspect]
     Active Substance: COBIMETINIB
     Indication: MALIGNANT MELANOMA
     Dosage: QD
     Route: 048
     Dates: start: 20130530, end: 20130911
  6. VEMURAFENIB [Suspect]
     Active Substance: VEMURAFENIB
     Indication: MALIGNANT MELANOMA
     Route: 048
     Dates: start: 20130530, end: 20130918
  7. PARACETAMOL [Concomitant]
     Active Substance: ACETAMINOPHEN
     Indication: ASTHENIA
     Route: 048
     Dates: start: 20130611
  8. SEGURIL [Concomitant]
     Active Substance: FUROSEMIDE
     Indication: OEDEMA
     Route: 048
     Dates: start: 20130722
  9. MUPIROCIN. [Concomitant]
     Active Substance: MUPIROCIN
     Indication: SKIN INFECTION
     Route: 061
  10. SYMBICORT [Concomitant]
     Active Substance: BUDESONIDE\FORMOTEROL FUMARATE DIHYDRATE
     Indication: ASTHMA
     Route: 065
  11. PARACETAMOL [Concomitant]
     Active Substance: ACETAMINOPHEN
     Indication: ARTHRALGIA
  12. LOSEC [Concomitant]
     Active Substance: OMEPRAZOLE
     Indication: RASH
     Route: 061
     Dates: start: 20130627
  13. SPECTRACEF (SPAIN) [Concomitant]
     Indication: PYREXIA
     Route: 048
     Dates: start: 20130923, end: 20130927

REACTIONS (4)
  - Benign neoplasm of skin [Recovered/Resolved]
  - Neoplasm skin [Recovered/Resolved]
  - Benign neoplasm of skin [Recovered/Resolved]
  - Seborrhoeic keratosis [Recovered/Resolved]

NARRATIVE: CASE EVENT DATE: 20130627
